FAERS Safety Report 26139561 (Version 1)
Quarter: 2025Q4

REPORT INFORMATION
  Report Type: Spontaneous
  Country: US (occurrence: None)
  Receive Date: 20251209
  Receipt Date: 20251209
  Transmission Date: 20260117
  Serious: Yes (Other)
  Sender: FDA-CTU
  Company Number: None

PATIENT
  Sex: Female

DRUGS (5)
  1. MEKINIST [Suspect]
     Active Substance: TRAMETINIB DIMETHYL SULFOXIDE
     Indication: Thyroid cancer
     Dosage: TAKE 1 TABLET BY MOUTH EVERY DAY TAKE WITH WATER AND ON AN EMPTY STOMACH 1 HOUR BEFORE OR 2 HOURS AFTER A MEAL.
     Route: 048
     Dates: start: 20240424
  2. LEVOTHYROXINE [Concomitant]
     Active Substance: LEVOTHYROXINE
  3. MEKINIST [Concomitant]
     Active Substance: TRAMETINIB DIMETHYL SULFOXIDE
  4. TAFINLAR [Concomitant]
     Active Substance: DABRAFENIB MESYLATE
  5. TAFINLAR [Concomitant]
     Active Substance: DABRAFENIB MESYLATE

REACTIONS (2)
  - Brain neoplasm [None]
  - Intentional dose omission [None]
